FAERS Safety Report 14624049 (Version 1)
Quarter: 2018Q1

REPORT INFORMATION
  Report Type: Spontaneous
  Country: US (occurrence: US)
  Receive Date: 20180309
  Receipt Date: 20180309
  Transmission Date: 20180509
  Serious: Yes (Other)
  Sender: FDA-Public Use
  Company Number: None

PATIENT
  Age: 66 Year
  Sex: Female
  Weight: 99 kg

DRUGS (3)
  1. BIOTIN [Suspect]
     Active Substance: BIOTIN
     Indication: THERAPEUTIC SKIN CARE TOPICAL
     Route: 048
     Dates: end: 20180309
  2. BIOTIN [Suspect]
     Active Substance: BIOTIN
     Indication: NAIL DISORDER
     Route: 048
     Dates: end: 20180309
  3. BIOTIN [Suspect]
     Active Substance: BIOTIN
     Indication: HAIR DISORDER
     Route: 048
     Dates: end: 20180309

REACTIONS (2)
  - Wrong technique in product usage process [None]
  - Gingival pain [None]

NARRATIVE: CASE EVENT DATE: 20180309
